FAERS Safety Report 8098096-1 (Version None)
Quarter: 2012Q1

REPORT INFORMATION
  Report Type: 
  Country: None (occurrence: None)
  Receive Date: 20120128
  Receipt Date: 20110808
  Transmission Date: 20120608
  Serious: No
  Sender: FDA-Public Use
  Company Number: US-ABBOTT-11P-163-0844924-00

PATIENT
  Age: 24 Year
  Sex: Female

DRUGS (1)
  1. HUMIRA [Suspect]
     Indication: SKIN DISORDER
     Dates: start: 20110601

REACTIONS (4)
  - SINUSITIS [None]
  - NASOPHARYNGITIS [None]
  - TOOTHACHE [None]
  - DYSPNOEA [None]
